FAERS Safety Report 5280580-7 (Version None)
Quarter: 2007Q1

REPORT INFORMATION
  Report Type: 
  Country: None (occurrence: None)
  Receive Date: 20070329
  Receipt Date: 20070321
  Transmission Date: 20070707
  Serious: Yes (Other)
  Sender: FDA-Public Use
  Company Number: 2007UW05576

PATIENT
  Age: 63 Year
  Sex: Female
  Weight: 68.4 kg

DRUGS (9)
  1. FASLODEX [Suspect]
     Indication: BREAST CANCER
     Route: 030
     Dates: start: 20060201
  2. VITAMIN B6 [Concomitant]
  3. VITAMIN CAP [Concomitant]
  4. OXYCODONE HCL [Concomitant]
  5. NEXIUM [Concomitant]
     Route: 048
  6. WARFARIN SODIUM [Concomitant]
  7. FUROSEMIDE [Concomitant]
  8. GABAPENTIN [Concomitant]
  9. VICOPROFEN [Concomitant]

REACTIONS (4)
  - BLOOD PRESSURE DECREASED [None]
  - DYSPNOEA [None]
  - OXYGEN SATURATION [None]
  - PRESYNCOPE [None]
